FAERS Safety Report 6049982-5 (Version None)
Quarter: 2009Q1

REPORT INFORMATION
  Report Type: 
  Country: None (occurrence: None)
  Receive Date: 20090121
  Receipt Date: 20090104
  Transmission Date: 20090719
  Serious: Yes (Hospitalization)
  Sender: FDA-Public Use
  Company Number: 8041080

PATIENT
  Sex: Female
  Weight: 43.18 kg

DRUGS (1)
  1. KEPPRA [Suspect]
     Indication: PROPHYLAXIS
     Dosage: 250 MG 2/D PO
     Route: 048

REACTIONS (3)
  - CONVULSION [None]
  - DRUG DOSE OMISSION [None]
  - LOSS OF CONSCIOUSNESS [None]
